FAERS Safety Report 19351501 (Version 1)
Quarter: 2021Q2

REPORT INFORMATION
  Report Type: Spontaneous
  Country: US (occurrence: US)
  Receive Date: 20210531
  Receipt Date: 20210531
  Transmission Date: 20210717
  Serious: No
  Sender: FDA-Public Use
  Company Number: US-PFIZER INC-2021252888

PATIENT

DRUGS (2)
  1. VIAGRA [Suspect]
     Active Substance: SILDENAFIL CITRATE
     Dosage: UNK
  2. IBUPROFEN. [Interacting]
     Active Substance: IBUPROFEN
     Dosage: UNK

REACTIONS (2)
  - Dysuria [Unknown]
  - Drug interaction [Unknown]
